FAERS Safety Report 20815205 (Version 2)
Quarter: 2022Q2

REPORT INFORMATION
  Report Type: Spontaneous
  Country: US (occurrence: US)
  Receive Date: 20220511
  Receipt Date: 20220520
  Transmission Date: 20220720
  Serious: No
  Sender: FDA-Public Use
  Company Number: US-PFIZER INC-202200568746

PATIENT
  Age: 55 Year
  Sex: Female

DRUGS (1)
  1. XELJANZ XR [Suspect]
     Active Substance: TOFACITINIB CITRATE
     Indication: Rheumatoid arthritis
     Dosage: 11 MG, 1X/DAY
     Route: 048
     Dates: start: 2021

REACTIONS (7)
  - Pain [Recovering/Resolving]
  - Swelling [Recovering/Resolving]
  - Constipation [Unknown]
  - Memory impairment [Recovered/Resolved]
  - Joint swelling [Recovered/Resolved]
  - Depressed mood [Recovered/Resolved]
  - Discouragement [Recovered/Resolved]
